FAERS Safety Report 18347650 (Version 2)
Quarter: 2021Q1

REPORT INFORMATION
  Report Type: Report from Study
  Country: US (occurrence: US)
  Receive Date: 20201006
  Receipt Date: 20210203
  Transmission Date: 20210419
  Serious: No
  Sender: FDA-Public Use
  Company Number: US-009507513-2010USA001411

PATIENT
  Age: 24 Year
  Sex: Female
  Weight: 136.05 kg

DRUGS (2)
  1. VYVANSE [Concomitant]
     Active Substance: LISDEXAMFETAMINE DIMESYLATE
     Dosage: UNK
  2. IMPLANON [Suspect]
     Active Substance: ETONOGESTREL
     Indication: CONTRACEPTION
     Dosage: 1 ROD, INTO HER LEFT ARM; STRENGTH 68 MG
     Route: 059
     Dates: start: 201803

REACTIONS (3)
  - Overweight [Not Recovered/Not Resolved]
  - Menstrual disorder [Unknown]
  - Menstrual disorder [Not Recovered/Not Resolved]

NARRATIVE: CASE EVENT DATE: 201803
